FAERS Safety Report 17142791 (Version 1)
Quarter: 2019Q4

REPORT INFORMATION
  Report Type: Spontaneous
  Country: US (occurrence: US)
  Receive Date: 20191211
  Receipt Date: 20191211
  Transmission Date: 20200122
  Serious: Yes (Death, Other)
  Sender: FDA-Public Use
  Company Number: NVSC2019US064737

PATIENT
  Age: 32 Year
  Sex: Female

DRUGS (1)
  1. ACETAMINOPHEN (PARACETAMOL) [Suspect]
     Active Substance: ACETAMINOPHEN
     Indication: PRODUCT USED FOR UNKNOWN INDICATION
     Dosage: UNK
     Route: 065

REACTIONS (11)
  - Hypotension [Unknown]
  - Agitation [Unknown]
  - Coagulopathy [Unknown]
  - Arrhythmia [Unknown]
  - Metabolic acidosis [Unknown]
  - Nervous system disorder [Unknown]
  - Toxicity to various agents [Fatal]
  - Bradypnoea [Unknown]
  - Anion gap [Unknown]
  - Hepatotoxicity [Unknown]
  - Hypertension [Unknown]
